FAERS Safety Report 7755836-6 (Version None)
Quarter: 2011Q3

REPORT INFORMATION
  Report Type: 
  Country: None (occurrence: None)
  Receive Date: 20110915
  Receipt Date: 20110915
  Transmission Date: 20111222
  Serious: Yes (Hospitalization)
  Sender: FDA-Public Use
  Company Number: None

PATIENT

DRUGS (2)
  1. FENTANYL [Suspect]
     Dosage: SEE NOTE IN B5  SEE NOTE IN B5  SEE NOTE IN B5
     Dates: start: 20110821, end: 20110830
  2. FENTANYL [Suspect]
     Dosage: SEE NOTE IN B5  SEE NOTE IN B5  SEE NOTE IN B5
     Dates: start: 20110831

REACTIONS (1)
  - RESPIRATORY DISTRESS [None]
